FAERS Safety Report 7397103-9 (Version None)
Quarter: 2011Q2

REPORT INFORMATION
  Report Type: 
  Country: None (occurrence: None)
  Receive Date: 20110406
  Receipt Date: 20110216
  Transmission Date: 20111010
  Serious: Yes (Other)
  Sender: FDA-Public Use
  Company Number: A0915143A

PATIENT
  Age: 62 Year
  Sex: Female

DRUGS (5)
  1. LOVAZA [Suspect]
     Route: 065
     Dates: start: 20090301
  2. HYDROCHLOROTHIAZIDE [Concomitant]
  3. ATACAND [Concomitant]
  4. VITAMIN TAB [Concomitant]
  5. LIPITOR [Concomitant]

REACTIONS (3)
  - IRON DEFICIENCY ANAEMIA [None]
  - CONDITION AGGRAVATED [None]
  - ALOPECIA [None]
